FAERS Safety Report 4303838-4 (Version None)
Quarter: 2004Q1

REPORT INFORMATION
  Report Type: 
  Country: None (occurrence: None)
  Receive Date: 20040224
  Receipt Date: 20040224
  Transmission Date: 20041129
  Serious: Yes (Other)
  Sender: FDA-Public Use
  Company Number: None

PATIENT
  Age: 52 Year
  Sex: Male
  Weight: 83.9154 kg

DRUGS (5)
  1. NIFEDIPINE [Suspect]
     Indication: HYPERTENSION
     Dosage: 1 TABLET DAILY BY MOUTH
  2. NIFEDIPINE [Suspect]
     Indication: PHARMACEUTICAL PRODUCT COMPLAINT
     Dosage: 1 TABLET DAILY BY MOUTH
  3. OXYCONTIN [Concomitant]
  4. KLONOPIN [Concomitant]
  5. METHADONE HCL [Concomitant]

REACTIONS (4)
  - BLOOD PRESSURE INCREASED [None]
  - DRUG INEFFECTIVE [None]
  - PHARMACEUTICAL PRODUCT COMPLAINT [None]
  - STOOL ANALYSIS ABNORMAL [None]
